FAERS Safety Report 8167486-0 (Version None)
Quarter: 2012Q1

REPORT INFORMATION
  Report Type: 
  Country: None (occurrence: None)
  Receive Date: 20120221
  Receipt Date: 20120206
  Transmission Date: 20120608
  Serious: Yes (Hospitalization, Disabling, Other)
  Sender: FDA-Public Use
  Company Number: CIP09002577

PATIENT
  Age: 82 Year
  Sex: Female
  Weight: 58 kg

DRUGS (6)
  1. ACTONEL [Suspect]
     Dosage: 150 MG ONCE MONTHLY, ORAL
     Route: 048
     Dates: start: 20081001, end: 20090301
  2. ACTONEL [Suspect]
     Indication: OSTEOPENIA
     Dosage: 35 MG, ORAL
     Route: 048
     Dates: end: 20090301
  3. ATENOLOL [Concomitant]
  4. NORVASC [Concomitant]
  5. ATIVAN [Concomitant]
  6. SYNTHROID [Concomitant]

REACTIONS (26)
  - LOSS OF CONTROL OF LEGS [None]
  - BONE PAIN [None]
  - PRURITUS [None]
  - CLOSTRIDIAL INFECTION [None]
  - PRIMARY SEQUESTRUM [None]
  - BONE FRAGMENTATION [None]
  - FALL [None]
  - NEUROPATHY PERIPHERAL [None]
  - CONNECTIVE TISSUE INFLAMMATION [None]
  - TENDON PAIN [None]
  - ABSCESS NECK [None]
  - GINGIVITIS [None]
  - TOOTH LOSS [None]
  - BONE LOSS [None]
  - EXCESSIVE GRANULATION TISSUE [None]
  - OSTEITIS [None]
  - OSTECTOMY [None]
  - OSTEONECROSIS OF JAW [None]
  - SKIN MASS [None]
  - PAIN IN JAW [None]
  - NEURODEGENERATIVE DISORDER [None]
  - MYALGIA [None]
  - TOOTH ABSCESS [None]
  - SCAB [None]
  - LIMB ASYMMETRY [None]
  - TOOTH EXTRACTION [None]
